FAERS Safety Report 4633696-X (Version None)
Quarter: 2005Q2

REPORT INFORMATION
  Report Type: 
  Country: None (occurrence: None)
  Receive Date: 20050331
  Receipt Date: 20040319
  Transmission Date: 20051028
  Serious: Yes (Other)
  Sender: FDA-Public Use
  Company Number: 200211762BCC

PATIENT
  Age: 26 Year
  Sex: Female
  Weight: 52.1637 kg

DRUGS (1)
  1. ALEVE [Suspect]
     Indication: BACK PAIN
     Dosage: 220 MG, ONCE, ORAL
     Route: 048
     Dates: start: 20000730, end: 20000731

REACTIONS (10)
  - ANXIETY [None]
  - DYSPHAGIA [None]
  - DYSPNOEA [None]
  - EARLY MORNING AWAKENING [None]
  - OESOPHAGEAL PAIN [None]
  - OESOPHAGEAL ULCER [None]
  - SENSATION OF FOREIGN BODY [None]
  - SLEEP DISORDER [None]
  - VAGINAL PAIN [None]
  - WEIGHT DECREASED [None]
